FAERS Safety Report 10024664 (Version 1)
Quarter: 2014Q1

REPORT INFORMATION
  Report Type: Spontaneous
  Country: US (occurrence: None)
  Receive Date: 20140319
  Receipt Date: 20140319
  Transmission Date: 20141002
  Serious: Yes (Other)
  Sender: FDA-Public Use
  Company Number: None

PATIENT
  Age: 62 Year
  Sex: Male

DRUGS (5)
  1. ZYTIGA [Suspect]
     Indication: PROSTATE CANCER
     Dosage: 2 TABLETS
     Route: 048
     Dates: start: 20131003, end: 20140318
  2. PREDNISONE [Concomitant]
  3. HYDROCODONE APAP [Concomitant]
  4. IBUPROFEN [Concomitant]
  5. TRAMADOL [Concomitant]

REACTIONS (1)
  - Drug ineffective [None]
